FAERS Safety Report 19548997 (Version 3)
Quarter: 2021Q4

REPORT INFORMATION
  Report Type: Report from Study
  Country: US (occurrence: US)
  Receive Date: 20210714
  Receipt Date: 20211015
  Transmission Date: 20220303
  Serious: Yes (Hospitalization, Other)
  Sender: FDA-Public Use
  Company Number: US-JNJFOC-20210724543

PATIENT
  Age: 79 Year
  Sex: Female
  Weight: 61.4 kg

DRUGS (2)
  1. SELEXIPAG [Suspect]
     Active Substance: SELEXIPAG
     Indication: Pulmonary arterial hypertension
     Route: 048
     Dates: start: 2018
  2. NIFEDIPINE [Concomitant]
     Active Substance: NIFEDIPINE

REACTIONS (3)
  - Diverticulitis [Unknown]
  - Product dose omission issue [Unknown]
  - Compression fracture [Recovering/Resolving]

NARRATIVE: CASE EVENT DATE: 20210601
